FAERS Safety Report 16882781 (Version 2)
Quarter: 2020Q3

REPORT INFORMATION
  Report Type: Spontaneous
  Country: IT (occurrence: IT)
  Receive Date: 20191003
  Receipt Date: 20200724
  Transmission Date: 20201102
  Serious: Yes (Hospitalization, Other)
  Sender: FDA-Public Use
  Company Number: IT-AUROBINDO-AUR-APL-2013-08882

PATIENT
  Age: 57 Year
  Sex: Male

DRUGS (5)
  1. AMOXICILLIN / CLAVULANIC ACID AUROBINDO 875/125MG FILM?COATED TABLET [Suspect]
     Active Substance: AMOXICILLIN\CLAVULANIC ACID
     Indication: TOOTH ABSCESS
     Dosage: 1000 MILLIGRAM
     Route: 048
  2. KRUXADE [Suspect]
     Active Substance: AMOXICILLIN\CLAVULANATE POTASSIUM
     Indication: PERIODONTAL DISEASE
     Dosage: 875 MILLIGRAM
     Route: 048
  3. AMOXICILLIN / CLAVULANIC ACID AUROBINDO 875/125MG FILM?COATED TABLET [Suspect]
     Active Substance: AMOXICILLIN\CLAVULANIC ACID
     Indication: PERIODONTAL DISEASE
     Dosage: 1 DOSAGE FORM, TOTAL, SINGLE (875/125 MG STRENGTH PILL)
     Route: 065
     Dates: start: 201112
  4. ATORVASTATIN [Concomitant]
     Active Substance: ATORVASTATIN
     Indication: PRODUCT USED FOR UNKNOWN INDICATION
     Dosage: UNK
     Route: 065
  5. TAPAZOLE [Concomitant]
     Active Substance: METHIMAZOLE
     Indication: PRODUCT USED FOR UNKNOWN INDICATION
     Dosage: UNK
     Route: 065

REACTIONS (9)
  - Kounis syndrome [Recovered/Resolved]
  - Dyspnoea [Recovered/Resolved]
  - Anaphylactic reaction [Recovered/Resolved]
  - Rash [Recovered/Resolved]
  - Electrocardiogram ST segment elevation [Recovered/Resolved]
  - Pruritus [Recovered/Resolved]
  - Hypotension [Recovered/Resolved]
  - Chest pain [Recovered/Resolved]
  - Nausea [Recovered/Resolved]
